FAERS Safety Report 5724272-6 (Version None)
Quarter: 2008Q2

REPORT INFORMATION
  Report Type: 
  Country: None (occurrence: None)
  Receive Date: 20080428
  Receipt Date: 20080419
  Transmission Date: 20081010
  Serious: Yes (Life-Threatening)
  Sender: FDA-Public Use
  Company Number: POMP-1000040

PATIENT
  Age: 8 Month
  Sex: Male
  Weight: 5.8 kg

DRUGS (4)
  1. MYOZYME [Suspect]
     Indication: GLYCOGEN STORAGE DISEASE TYPE II
     Dosage: 20 MG/KG, Q2W, INTRAVENOUS
     Route: 042
     Dates: start: 20070815
  2. CARVEDILOL [Concomitant]
  3. SPIRONOLACTONE [Concomitant]
  4. ALANINE (ALANIE) [Concomitant]

REACTIONS (7)
  - ASPIRATION [None]
  - BRADYCARDIA [None]
  - DEVELOPMENTAL DELAY [None]
  - FAILURE TO THRIVE [None]
  - MUSCLE DISORDER [None]
  - NO THERAPEUTIC RESPONSE [None]
  - OXYGEN SATURATION DECREASED [None]
